FAERS Safety Report 6419837-2 (Version None)
Quarter: 2009Q4

REPORT INFORMATION
  Report Type: 
  Country: None (occurrence: None)
  Receive Date: 20091029
  Receipt Date: 20091019
  Transmission Date: 20100525
  Serious: Yes (Hospitalization, Other)
  Sender: FDA-Public Use
  Company Number: US-ABBOTT-09P-163-0603751-00

PATIENT
  Sex: Female
  Weight: 55.842 kg

DRUGS (1)
  1. HUMIRA [Suspect]
     Indication: CROHN'S DISEASE
     Route: 058
     Dates: start: 20090701, end: 20090901

REACTIONS (3)
  - INTESTINAL STENOSIS [None]
  - SMALL INTESTINAL OBSTRUCTION [None]
  - WOUND [None]
